FAERS Safety Report 16850972 (Version 4)
Quarter: 2021Q4

REPORT INFORMATION
  Report Type: Spontaneous
  Country: US (occurrence: US)
  Receive Date: 20190925
  Receipt Date: 20211229
  Transmission Date: 20220303
  Serious: Yes (Other)
  Sender: FDA-Public Use
  Company Number: US-GILEAD-2019-0429328

PATIENT
  Age: 62 Year
  Sex: Male
  Weight: 78.005 kg

DRUGS (48)
  1. TRUVADA [Suspect]
     Active Substance: EMTRICITABINE\TENOFOVIR DISOPROXIL FUMARATE
     Indication: HIV infection
     Dosage: UNK
     Route: 048
     Dates: start: 2005, end: 2011
  2. COMPLERA [Suspect]
     Active Substance: EMTRICITABINE\RILPIVIRINE HYDROCHLORIDE\TENOFOVIR DISOPROXIL FUMARATE
     Indication: HIV infection
     Dosage: UNK
     Route: 048
     Dates: start: 2011, end: 2018
  3. COMPLERA [Suspect]
     Active Substance: EMTRICITABINE\RILPIVIRINE HYDROCHLORIDE\TENOFOVIR DISOPROXIL FUMARATE
     Dosage: UNK
     Route: 048
     Dates: start: 20141222, end: 20171010
  4. COMPLERA [Suspect]
     Active Substance: EMTRICITABINE\RILPIVIRINE HYDROCHLORIDE\TENOFOVIR DISOPROXIL FUMARATE
     Dosage: UNK
     Route: 048
     Dates: start: 201401, end: 20171010
  5. GENVOYA [Concomitant]
     Active Substance: COBICISTAT\ELVITEGRAVIR\EMTRICITABINE\TENOFOVIR ALAFENAMIDE FUMARATE
  6. AMOXICILLIN [Concomitant]
     Active Substance: AMOXICILLIN
  7. AZITHROMYCIN [Concomitant]
     Active Substance: AZITHROMYCIN
  8. CEFDINIR [Concomitant]
     Active Substance: CEFDINIR
  9. CHLORHEXIDINE [Concomitant]
     Active Substance: CHLORHEXIDINE
  10. EMTRICITABINE [Concomitant]
     Active Substance: EMTRICITABINE
  11. CALCITRIOL [Concomitant]
     Active Substance: CALCITRIOL
  12. ENDOCET [Concomitant]
     Active Substance: ACETAMINOPHEN\OXYCODONE HYDROCHLORIDE
  13. FENTANYL [Concomitant]
     Active Substance: FENTANYL
  14. FLUCONAZOLE [Concomitant]
     Active Substance: FLUCONAZOLE
  15. GABAPENTIN [Concomitant]
     Active Substance: GABAPENTIN
  16. CIPROFLOXACIN [Concomitant]
     Active Substance: CIPROFLOXACIN
  17. COBICISTAT [Concomitant]
     Active Substance: COBICISTAT
  18. ENOXAPARIN [Concomitant]
     Active Substance: ENOXAPARIN
  19. IBUPROFEN [Concomitant]
     Active Substance: IBUPROFEN
  20. AMOX+AC CLAV ACV [Concomitant]
  21. FLULAVAL [Concomitant]
  22. FLUCONAZOLE [Concomitant]
     Active Substance: FLUCONAZOLE
  23. LISINOPRIL [Concomitant]
     Active Substance: LISINOPRIL
  24. LORAZEPAM [Concomitant]
     Active Substance: LORAZEPAM
  25. METOCLOPRAMIDE [Concomitant]
     Active Substance: METOCLOPRAMIDE
  26. METOPROLOL [Concomitant]
     Active Substance: METOPROLOL
  27. MIDODRINE [Concomitant]
     Active Substance: MIDODRINE
  28. NICOTROL [Concomitant]
     Active Substance: NICOTINE
  29. NYSTATIN [Concomitant]
     Active Substance: NYSTATIN
  30. ZOFRAN [Concomitant]
     Active Substance: ONDANSETRON HYDROCHLORIDE
  31. OXYCODONE [Concomitant]
     Active Substance: OXYCODONE
  32. PERCOCET [Concomitant]
     Active Substance: ACETAMINOPHEN\OXYCODONE HYDROCHLORIDE
  33. PENICILLIN [Concomitant]
     Active Substance: PENICILLIN
  34. PNEUMOVAX 23 [Concomitant]
     Active Substance: PNEUMOCOCCAL VACCINE, POLYVALENT 23
  35. PREDNISONE [Concomitant]
     Active Substance: PREDNISONE
  36. PREVIDENT [Concomitant]
     Active Substance: SODIUM FLUORIDE
  37. PROAIR BRONQUIAL [Concomitant]
  38. PROMETHAZINE [Concomitant]
     Active Substance: PROMETHAZINE HYDROCHLORIDE
  39. SHINGRIX [Concomitant]
     Active Substance: RECOMBINANT VARICELLA ZOSTER VIRUS (VZV) GLYCOPROTEIN E
  40. SILDENAFIL CITRATE [Concomitant]
     Active Substance: SILDENAFIL CITRATE
  41. MELOXICAM [Concomitant]
     Active Substance: MELOXICAM
  42. BACTRIM [Concomitant]
     Active Substance: SULFAMETHOXAZOLE\TRIMETHOPRIM
  43. SUPREP BOWEL PREP [Concomitant]
     Active Substance: MAGNESIUM SULFATE\POTASSIUM SULFATE\SODIUM SULFATE
  44. CIALIS [Concomitant]
     Active Substance: TADALAFIL
  45. TOBRAMYCIN [Concomitant]
     Active Substance: TOBRAMYCIN
  46. TRAMADOL [Concomitant]
     Active Substance: TRAMADOL
  47. VITAMIN D NOS [Concomitant]
     Active Substance: VITAMIN D NOS
  48. DOVATO [Concomitant]
     Active Substance: DOLUTEGRAVIR SODIUM\LAMIVUDINE

REACTIONS (17)
  - Osteoporosis [Not Recovered/Not Resolved]
  - Spinal fracture [Unknown]
  - Chronic kidney disease [Not Recovered/Not Resolved]
  - Acute kidney injury [Not Recovered/Not Resolved]
  - Emotional distress [Not Recovered/Not Resolved]
  - Loss of personal independence in daily activities [Not Recovered/Not Resolved]
  - Quality of life decreased [Not Recovered/Not Resolved]
  - Decreased activity [Not Recovered/Not Resolved]
  - Lethargy [Not Recovered/Not Resolved]
  - Impaired work ability [Not Recovered/Not Resolved]
  - Anhedonia [Not Recovered/Not Resolved]
  - Economic problem [Not Recovered/Not Resolved]
  - Anxiety [Not Recovered/Not Resolved]
  - Pain [Not Recovered/Not Resolved]
  - Depression [Not Recovered/Not Resolved]
  - Intervertebral disc degeneration [Unknown]
  - Osteopenia [Unknown]

NARRATIVE: CASE EVENT DATE: 20140101
